FAERS Safety Report 8427162-3 (Version None)
Quarter: 2012Q2

REPORT INFORMATION
  Report Type: 
  Country: None (occurrence: None)
  Receive Date: 20120611
  Receipt Date: 20120606
  Transmission Date: 20120825
  Serious: No
  Sender: FDA-Public Use
  Company Number: US-TEVA-342082USA

PATIENT
  Age: 27 Year
  Sex: Female
  Weight: 90.8 kg

DRUGS (2)
  1. CELEXA [Concomitant]
     Indication: ANXIETY
  2. PLAN B ONE-STEP [Suspect]
     Indication: POST COITAL CONTRACEPTION
     Dosage: 1.5 MILLIGRAM;
     Route: 048
     Dates: start: 20120525, end: 20120525

REACTIONS (4)
  - MENSTRUATION IRREGULAR [None]
  - BACK PAIN [None]
  - DEPRESSED MOOD [None]
  - PELVIC PAIN [None]
